FAERS Safety Report 10532576 (Version 1)
Quarter: 2014Q4

REPORT INFORMATION
  Report Type: Spontaneous
  Country: US (occurrence: US)
  Receive Date: 20141021
  Receipt Date: 20141021
  Transmission Date: 20150529
  Serious: No
  Sender: FDA-Public Use
  Company Number: US-PURDUE-USA-2014-0117511

PATIENT
  Age: 57 Year
  Sex: Male

DRUGS (1)
  1. OXYCONTIN [Suspect]
     Active Substance: OXYCODONE HYDROCHLORIDE
     Indication: PROCEDURAL PAIN
     Dosage: 60 MG, BID
     Route: 048
     Dates: start: 20140325

REACTIONS (5)
  - Product odour abnormal [Unknown]
  - Drug ineffective [Unknown]
  - Nausea [Unknown]
  - Product solubility abnormal [Unknown]
  - Product taste abnormal [Unknown]

NARRATIVE: CASE EVENT DATE: 20140325
